FAERS Safety Report 9787721 (Version 1)
Quarter: 2013Q4

REPORT INFORMATION
  Report Type: Spontaneous
  Country: IT (occurrence: IT)
  Receive Date: 20131230
  Receipt Date: 20131230
  Transmission Date: 20140711
  Serious: Yes (Hospitalization)
  Sender: FDA-Public Use
  Company Number: IT-ABBVIE-13P-083-1183814-00

PATIENT
  Age: 34 Year
  Sex: Male

DRUGS (1)
  1. MACLADIN [Suspect]
     Indication: EAR INFECTION
     Route: 048
     Dates: start: 20131209, end: 20131209

REACTIONS (1)
  - Oedema [Recovering/Resolving]
